FAERS Safety Report 24063318 (Version 3)
Quarter: 2025Q3

REPORT INFORMATION
  Report Type: Spontaneous
  Country: JP (occurrence: JP)
  Receive Date: 20240709
  Receipt Date: 20250804
  Transmission Date: 20251020
  Serious: Yes (Other)
  Sender: SANOFI AVENTIS
  Company Number: JP-SA-2024SA193933

PATIENT
  Age: 53 Year
  Sex: Male

DRUGS (1)
  1. DUPIXENT [Suspect]
     Active Substance: DUPILUMAB
     Indication: Chronic rhinosinusitis with nasal polyps
     Route: 058

REACTIONS (16)
  - Eosinophilic granulomatosis with polyangiitis [Recovered/Resolved]
  - Scleritis [Recovered/Resolved]
  - Cellulitis orbital [Recovered/Resolved]
  - Swelling of eyelid [Recovered/Resolved]
  - Conjunctival oedema [Recovered/Resolved]
  - Urticaria [Recovered/Resolved]
  - Abdominal pain [Recovered/Resolved]
  - Vomiting [Recovered/Resolved]
  - Respiratory tract inflammation [Recovered/Resolved]
  - Gastroenteritis eosinophilic [Recovered/Resolved]
  - Eosinophilic oesophagitis [Recovered/Resolved]
  - Orbital swelling [Recovered/Resolved]
  - Ocular hyperaemia [Recovered/Resolved]
  - Binocular eye movement disorder [Recovered/Resolved]
  - Erythema [Recovered/Resolved]
  - Diarrhoea [Recovered/Resolved]
